FAERS Safety Report 11256955 (Version 1)
Quarter: 2015Q3

REPORT INFORMATION
  Report Type: Spontaneous
  Country: US (occurrence: US)
  Receive Date: 20150709
  Receipt Date: 20150709
  Transmission Date: 20151125
  Serious: No
  Sender: FDA-Public Use
  Company Number: US-PURDUE-USA-2015-0124585

PATIENT
  Age: 38 Year
  Sex: Female

DRUGS (1)
  1. BUTRANS [Suspect]
     Active Substance: BUPRENORPHINE
     Indication: PAIN
     Dosage: 20 MCG/HR, WEEKLY
     Route: 062
     Dates: start: 20150602, end: 20150627

REACTIONS (11)
  - Agitation [Not Recovered/Not Resolved]
  - Application site haemorrhage [Recovering/Resolving]
  - Application site pain [Recovering/Resolving]
  - Pain [Unknown]
  - Application site irritation [Recovering/Resolving]
  - Application site vesicles [Recovering/Resolving]
  - Application site rash [Unknown]
  - Product adhesion issue [Unknown]
  - Insomnia [Not Recovered/Not Resolved]
  - Application site pruritus [Recovering/Resolving]
  - Nervousness [Not Recovered/Not Resolved]

NARRATIVE: CASE EVENT DATE: 20150602
